FAERS Safety Report 12310562 (Version 4)
Quarter: 2016Q3

REPORT INFORMATION
  Report Type: Report from Study
  Country: US (occurrence: US)
  Receive Date: 20160427
  Receipt Date: 20160812
  Transmission Date: 20161109
  Serious: Yes (Other)
  Sender: FDA-Public Use
  Company Number: PHEH2016US010343

PATIENT
  Age: 71 Year
  Sex: Female
  Weight: 71.2 kg

DRUGS (4)
  1. VOTRIENT [Suspect]
     Active Substance: PAZOPANIB HYDROCHLORIDE
     Indication: METASTATIC RENAL CELL CARCINOMA
     Dosage: 2 DF, QD
     Route: 048
     Dates: start: 20150103, end: 20150220
  2. INLYTA [Concomitant]
     Active Substance: AXITINIB
     Indication: PRODUCT USED FOR UNKNOWN INDICATION
     Dosage: 5 MG, BID
     Route: 048
  3. DILTIAZEM. [Concomitant]
     Active Substance: DILTIAZEM
     Indication: PRODUCT USED FOR UNKNOWN INDICATION
     Dosage: 180 MG, QD
     Route: 048
  4. DILTIAZEM. [Concomitant]
     Active Substance: DILTIAZEM
     Dosage: 120 MG, QD (SLOW RELEASE)
     Route: 048

REACTIONS (9)
  - Malignant neoplasm progression [Unknown]
  - Lymphadenopathy [Unknown]
  - Kidney enlargement [Unknown]
  - Adrenomegaly [Unknown]
  - Diverticulum intestinal [Unknown]
  - Platelet count decreased [Unknown]
  - Liver function test increased [Unknown]
  - Drug ineffective [Unknown]
  - Mean cell volume increased [Unknown]

NARRATIVE: CASE EVENT DATE: 201509
